FAERS Safety Report 14699731 (Version 1)
Quarter: 2018Q1

REPORT INFORMATION
  Report Type: Report from Study
  Country: None (occurrence: HU)
  Receive Date: 20180330
  Receipt Date: 20180330
  Transmission Date: 20180509
  Serious: Yes (Hospitalization)
  Sender: FDA-Public Use
  Company Number: HU-ABBVIE-18K-076-2304154-00

PATIENT
  Age: 73 Year
  Sex: Male

DRUGS (6)
  1. REQUIP [Concomitant]
     Active Substance: ROPINIROLE HYDROCHLORIDE
     Indication: PARKINSON^S DISEASE
     Dosage: 20 MG IN THE MORNING
     Route: 048
     Dates: start: 2009
  2. METOPROLOL. [Concomitant]
     Active Substance: METOPROLOL
     Indication: ATRIAL FIBRILLATION
     Route: 048
     Dates: start: 2011
  3. CO-RENITEC [Concomitant]
     Active Substance: ENALAPRIL\HYDROCHLOROTHIAZIDE
     Indication: HYPERTENSION
     Dosage: 0.5 TABLET AT A TIME
     Route: 048
     Dates: start: 2011
  4. VEROSPIRON [Concomitant]
     Active Substance: SPIRONOLACTONE
     Indication: DIURETIC THERAPY
     Dosage: 0.5 TABLET IN THE MORNING
     Route: 048
     Dates: start: 2011
  5. DUODOPA [Suspect]
     Active Substance: CARBIDOPA\LEVODOPA
     Indication: PARKINSON^S DISEASE
     Dosage: MORNING DOSE 5.0ML; CONTINUOUS DOSE 2.6ML/H;EXTRA DOSE 1.3ML
     Route: 050
     Dates: start: 20161209
  6. PRADAXA [Concomitant]
     Active Substance: DABIGATRAN ETEXILATE MESYLATE
     Indication: THROMBOSIS PROPHYLAXIS
     Route: 048
     Dates: start: 2011

REACTIONS (9)
  - Fall [Recovering/Resolving]
  - Eye haematoma [Recovering/Resolving]
  - Medical device site bruise [Not Recovered/Not Resolved]
  - Contusion [Recovering/Resolving]
  - Injury [Recovering/Resolving]
  - Stoma site discharge [Not Recovered/Not Resolved]
  - Skin mass [Recovering/Resolving]
  - Eye swelling [Unknown]
  - Catheter site pain [Unknown]

NARRATIVE: CASE EVENT DATE: 2018
